FAERS Safety Report 8384147-3 (Version None)
Quarter: 2012Q2

REPORT INFORMATION
  Report Type: 
  Country: None (occurrence: None)
  Receive Date: 20120524
  Receipt Date: 20120511
  Transmission Date: 20120825
  Serious: Yes (Other)
  Sender: FDA-Public Use
  Company Number: BR-ROCHE-453969

PATIENT
  Sex: Female
  Weight: 57 kg

DRUGS (13)
  1. AMPLICTIL [Concomitant]
     Indication: INSOMNIA
     Route: 048
  2. NOCTAL (BRAZIL) [Concomitant]
     Indication: INSOMNIA
     Route: 048
  3. CLONAZEPAM [Suspect]
     Dosage: ROUTE: ORAL, STRENGTH: 2MG/TABLET
     Route: 050
  4. PAROXETINE [Concomitant]
     Indication: DEPRESSION
     Route: 048
  5. CLONAZEPAM [Suspect]
     Indication: INSOMNIA
     Dosage: OTHER INDICATION: ANXIETY/ DEPRESSION/PHOBIA, PANIC SYNDROME CRISIS ROUTE: SUBLINGUAL TAKEN WHEN NE+
     Route: 050
  6. PHENERGAN [Concomitant]
     Indication: INSOMNIA
     Route: 048
  7. SYNTHROID [Concomitant]
     Route: 048
  8. TRILEPTAL [Concomitant]
     Dosage: DOSE: HALF TABLET TWICE A DAY (ON MORNING AND NIGHT)
  9. ZOLOFT [Concomitant]
  10. PROPRANOLOL [Concomitant]
  11. AMITRIPTILINA [Concomitant]
  12. CLONAZEPAM [Suspect]
  13. ROHYPNOL [Suspect]
     Indication: INSOMNIA
     Route: 048

REACTIONS (23)
  - HYPOTENSION [None]
  - HYPOAESTHESIA [None]
  - TACHYCARDIA [None]
  - CARDIAC DISCOMFORT [None]
  - IRON DEFICIENCY ANAEMIA [None]
  - HEPATIC PAIN [None]
  - NAUSEA [None]
  - AMNESIA [None]
  - DECREASED APPETITE [None]
  - BLADDER DILATATION [None]
  - SOMNAMBULISM [None]
  - PLATELET COUNT ABNORMAL [None]
  - CHEST PAIN [None]
  - EUPHORIC MOOD [None]
  - ARTHRALGIA [None]
  - HYPERHIDROSIS [None]
  - DIZZINESS [None]
  - SUICIDE ATTEMPT [None]
  - ABDOMINAL PAIN [None]
  - DYSPNOEA [None]
  - PAIN IN EXTREMITY [None]
  - THROMBOCYTOPENIA [None]
  - TREMOR [None]
